FAERS Safety Report 6822679-7 (Version None)
Quarter: 2010Q3

REPORT INFORMATION
  Report Type: 
  Country: None (occurrence: None)
  Receive Date: 20100708
  Receipt Date: 20100630
  Transmission Date: 20110219
  Serious: Yes (Other)
  Sender: FDA-Public Use
  Company Number: JP-PFIZER INC-2010081707

PATIENT
  Age: 58 Year
  Sex: Male

DRUGS (4)
  1. LIPITOR [Suspect]
     Dosage: 10 MG, 1X/DAY
     Route: 048
     Dates: start: 20100520
  2. DOGMATYL [Suspect]
     Dosage: 50 MG, DAILY
     Route: 048
  3. LEXOTAN [Concomitant]
     Dosage: UNK
  4. SEPAZON [Concomitant]
     Dosage: UNK

REACTIONS (1)
  - MENTAL DISORDER [None]
